FAERS Safety Report 20217325 (Version 7)
Quarter: 2025Q1

REPORT INFORMATION
  Report Type: Spontaneous
  Country: US (occurrence: US)
  Receive Date: 20211222
  Receipt Date: 20250212
  Transmission Date: 20250408
  Serious: Yes (Other)
  Sender: PFIZER
  Company Number: US-PFIZER INC-202101772581

PATIENT
  Age: 43 Year
  Sex: Female

DRUGS (8)
  1. XELJANZ XR [Suspect]
     Active Substance: TOFACITINIB CITRATE
     Indication: Rheumatoid arthritis
     Dosage: 11 MG PO QD (PER ORAL DAILY)
     Route: 048
  2. HYDROXYCHLOROQUINE [Concomitant]
     Active Substance: HYDROXYCHLOROQUINE
  3. PREDNISONE [Concomitant]
     Active Substance: PREDNISONE
  4. AMLODIPINE BESYLATE [Concomitant]
     Active Substance: AMLODIPINE BESYLATE
  5. ENALAPRIL MALEATE [Concomitant]
     Active Substance: ENALAPRIL MALEATE
  6. KETOROLAC [Concomitant]
     Active Substance: KETOROLAC TROMETHAMINE
  7. TRIAMCINOLONE ACETONIDE [Concomitant]
     Active Substance: TRIAMCINOLONE ACETONIDE
  8. TRIAMTERENE [Concomitant]
     Active Substance: TRIAMTERENE

REACTIONS (6)
  - Gait disturbance [Unknown]
  - Ureteric obstruction [Unknown]
  - Condition aggravated [Recovering/Resolving]
  - Joint lock [Unknown]
  - Pain in extremity [Unknown]
  - Malaise [Unknown]
